FAERS Safety Report 6203083-1 (Version None)
Quarter: 2009Q2

REPORT INFORMATION
  Report Type: 
  Country: None (occurrence: None)
  Receive Date: 20090521
  Receipt Date: 20090521
  Transmission Date: 20091009
  Serious: Yes (Death)
  Sender: FDA-Public Use
  Company Number: None

PATIENT
  Age: 61 Year
  Sex: Male

DRUGS (2)
  1. ENOXAPARIN SODIUM [Suspect]
     Indication: ATRIAL FIBRILLATION
     Dosage: VARIES VARIES SQ ONCE
     Route: 058
     Dates: start: 20090318, end: 20090319
  2. HEPARIN [Suspect]
     Indication: DIALYSIS
     Dosage: VARIES VARIES IV DRIP
     Route: 041
     Dates: start: 20090401, end: 20090406

REACTIONS (5)
  - BRAIN STEM SYNDROME [None]
  - HAEMORRHAGE INTRACRANIAL [None]
  - ISCHAEMIC STROKE [None]
  - PLATELET COUNT DECREASED [None]
  - SMALL INTESTINAL OBSTRUCTION [None]
